FAERS Safety Report 9016451 (Version 2)
Quarter: 2013Q1

REPORT INFORMATION
  Report Type: Spontaneous
  Country: AU (occurrence: AU)
  Receive Date: 20130116
  Receipt Date: 20130128
  Transmission Date: 20140127
  Serious: Yes (Death, Hospitalization)
  Sender: FDA-Public Use
  Company Number: AU-B.I. PHARMACEUTICALS,INC./RIDGEFIELD-2013-AU-00017AU

PATIENT
  Age: 89 None
  Sex: Male
  Weight: 70 kg

DRUGS (7)
  1. PRADAXA [Suspect]
     Indication: CEREBROVASCULAR ACCIDENT PROPHYLAXIS
     Dosage: 220 MG
     Dates: start: 20110829, end: 201210
  2. PRADAXA [Suspect]
     Indication: ATRIAL FIBRILLATION
  3. CHOLECALCIFEROL [Concomitant]
     Dosage: 25 MCG
  4. METOPROLOL TARTRATE [Concomitant]
     Dosage: 50 MG
  5. PREDNISOLONE [Concomitant]
     Dosage: 5 MG
  6. RANITIDINE HYDROCHLORIDE [Concomitant]
     Dosage: 150 MG
  7. TIMOLOL MALEATE [Concomitant]
     Dosage: 0.5%

REACTIONS (12)
  - Gastrointestinal haemorrhage [Fatal]
  - Intestinal ischaemia [Fatal]
  - Myalgia [Recovered/Resolved]
  - Oesophageal candidiasis [Unknown]
  - Hiatus hernia [Unknown]
  - Abdominal pain [Unknown]
  - Melaena [Unknown]
  - Aphasia [Unknown]
  - Abdominal pain upper [Unknown]
  - Normochromic normocytic anaemia [Unknown]
  - Vitamin D deficiency [Unknown]
  - Osteoporosis [Unknown]
